FAERS Safety Report 8597110-4 (Version None)
Quarter: 2012Q3

REPORT INFORMATION
  Report Type: 
  Country: None (occurrence: None)
  Receive Date: 20120816
  Receipt Date: 20120806
  Transmission Date: 20120928
  Serious: Yes (Hospitalization)
  Sender: FDA-Public Use
  Company Number: US-BIOGENIDEC-2012BI025154

PATIENT
  Age: 56 Year
  Sex: Female

DRUGS (4)
  1. TYSABRI [Suspect]
     Route: 042
  2. TYSABRI [Suspect]
     Route: 042
     Dates: end: 20120604
  3. INTERFERON BETA-1A [Concomitant]
     Indication: MULTIPLE SCLEROSIS
     Route: 030
  4. TYSABRI [Suspect]
     Indication: MULTIPLE SCLEROSIS
     Route: 042
     Dates: start: 20100114

REACTIONS (2)
  - SUICIDE ATTEMPT [None]
  - PNEUMONIA [None]
